FAERS Safety Report 10761770 (Version 1)
Quarter: 2015Q1

REPORT INFORMATION
  Report Type: Spontaneous
  Country: US (occurrence: None)
  Receive Date: 20150203
  Receipt Date: 20150203
  Transmission Date: 20150721
  Serious: No
  Sender: FDA-Public Use
  Company Number: None

PATIENT
  Age: 69 Year
  Sex: Female

DRUGS (1)
  1. PLEGRIDY [Suspect]
     Active Substance: PEGINTERFERON BETA-1A
     Indication: MULTIPLE SCLEROSIS
     Route: 058

REACTIONS (5)
  - Balance disorder [None]
  - Dyspnoea [None]
  - Chest discomfort [None]
  - Injection site erythema [None]
  - Dizziness [None]

NARRATIVE: CASE EVENT DATE: 20150116
